FAERS Safety Report 5469269-9 (Version None)
Quarter: 2007Q3

REPORT INFORMATION
  Report Type: 
  Country: None (occurrence: None)
  Receive Date: 20070926
  Receipt Date: 20070926
  Transmission Date: 20080115
  Serious: Yes (Other)
  Sender: FDA-Public Use
  Company Number: None

PATIENT
  Age: 48 Year
  Sex: Male
  Weight: 72.5755 kg

DRUGS (1)
  1. REQUIP [Suspect]
     Indication: RESTLESS LEGS SYNDROME
     Dosage: 5MG  ONCE AT BEDTIME  PO
     Route: 048
     Dates: start: 20030729, end: 20070724

REACTIONS (7)
  - BANKRUPTCY [None]
  - COMPULSIONS [None]
  - IMPRISONMENT [None]
  - INSOMNIA [None]
  - JOB DISSATISFACTION [None]
  - LEGAL PROBLEM [None]
  - PSYCHOTIC DISORDER [None]
